FAERS Safety Report 20281954 (Version 1)
Quarter: 2022Q1

REPORT INFORMATION
  Report Type: Spontaneous
  Country: DE (occurrence: DE)
  Receive Date: 20220103
  Receipt Date: 20220103
  Transmission Date: 20220423
  Serious: Yes (Hospitalization)
  Sender: FDA-Public Use
  Company Number: DE-ADRED-07419-01

PATIENT
  Age: 79 Year
  Sex: Male

DRUGS (8)
  1. SPIRONOLACTONE [Suspect]
     Active Substance: SPIRONOLACTONE
     Indication: Product used for unknown indication
     Dosage: 50 MILLIGRAM, BID (50 MG, 0.5-0-0-0, TABLETTEN)
     Route: 048
  2. TORSEMIDE [Suspect]
     Active Substance: TORSEMIDE
     Indication: Product used for unknown indication
     Dosage: 10 MILLIGRAM (10 MG, 2-1-0-0, TABLETTEN)
     Route: 048
  3. QUETIAPINE [Concomitant]
     Active Substance: QUETIAPINE
     Dosage: 50 MILLIGRAM, QD (50 MG, 0-0-1-0, TABLETTEN)
     Route: 048
  4. METOPROLOL [Concomitant]
     Active Substance: METOPROLOL
     Dosage: 23.75 MILLIGRAM, BID (23.75 MG, 1-0-1-0, RETARD-TABLETTEN)
     Route: 048
  5. CARBIDOPA\LEVODOPA [Concomitant]
     Active Substance: CARBIDOPA\LEVODOPA
     Dosage: 1 DOSAGE FORM, QD (25|100 MG, 1-0-0-0, RETARD-TABLETTEN)
     Route: 048
  6. DOXEPIN [Concomitant]
     Active Substance: DOXEPIN
     Dosage: 100 MILLIGRAM, QD (100 MG, 0-0-1-0, TABLETTEN)
     Route: 048
  7. APIXABAN [Concomitant]
     Active Substance: APIXABAN
     Dosage: 5 MILLIGRAM, BID (5 MG, 1-0-1-0, TABLETTEN)
     Route: 048
  8. ROSUVASTATIN [Concomitant]
     Active Substance: ROSUVASTATIN
     Dosage: 5 MILLIGRAM, QD (5 MG, 0-0-1-0, TABLETTEN)
     Route: 048

REACTIONS (6)
  - Pain [Unknown]
  - Muscular weakness [Unknown]
  - Language disorder [Unknown]
  - General physical health deterioration [Unknown]
  - Chest pain [Unknown]
  - Asthenia [Unknown]
